FAERS Safety Report 9342564 (Version 5)
Quarter: 2014Q2

REPORT INFORMATION
  Report Type: Spontaneous
  Country: US (occurrence: US)
  Receive Date: 20130611
  Receipt Date: 20140502
  Transmission Date: 20141212
  Serious: Yes (Hospitalization, Other)
  Sender: FDA-Public Use
  Company Number: US-009507513-1306USA001897

PATIENT
  Sex: Female
  Weight: 50 kg

DRUGS (7)
  1. FOSAMAX [Suspect]
     Indication: OSTEOPOROSIS
     Dosage: 10 MG, UNK
     Route: 048
     Dates: start: 199601
  2. FOSAMAX [Suspect]
     Dosage: 70 MG, QW
     Route: 048
  3. FOSAMAX [Suspect]
     Dosage: UNK
     Route: 048
     Dates: start: 199601
  4. ALENDRONATE SODIUM [Suspect]
     Indication: OSTEOPOROSIS
     Dosage: 70 MG, UNK
     Route: 048
     Dates: start: 200904, end: 201105
  5. ALENDRONATE SODIUM [Suspect]
     Dosage: UNK
     Dates: start: 201010, end: 201101
  6. CALCIUM (UNSPECIFIED) [Concomitant]
     Dosage: 1 DF, QD
     Dates: start: 1995
  7. VITAMINS (UNSPECIFIED) [Concomitant]
     Dosage: 1 DF, QD
     Dates: start: 1995

REACTIONS (31)
  - Hip fracture [Unknown]
  - Open reduction of fracture [Unknown]
  - Renal failure [Unknown]
  - Hemiparesis [Unknown]
  - Pelvic fracture [Recovering/Resolving]
  - Fractured sacrum [Unknown]
  - Lumbar radiculopathy [Recovered/Resolved]
  - Spondylolisthesis [Unknown]
  - Bone metabolism disorder [Unknown]
  - Cataract operation [Unknown]
  - Hypertension [Unknown]
  - Sleep disorder [Unknown]
  - Low turnover osteopathy [Unknown]
  - Pain [Unknown]
  - Osteoarthritis [Unknown]
  - Road traffic accident [Unknown]
  - Fall [Unknown]
  - Vertebral foraminal stenosis [Unknown]
  - Lacunar infarction [Unknown]
  - Ligament sprain [Unknown]
  - Muscle strain [Unknown]
  - Cardiac murmur [Unknown]
  - Hypovolaemia [Unknown]
  - Hyperglycaemia [Unknown]
  - Type 2 diabetes mellitus [Unknown]
  - Rib fracture [Unknown]
  - Muscular weakness [Unknown]
  - Kyphosis [Unknown]
  - Pulmonary arterial pressure increased [Unknown]
  - Pulmonary calcification [Unknown]
  - Dyspnoea exertional [Unknown]
